FAERS Safety Report 10092794 (Version 1)
Quarter: 2014Q2

REPORT INFORMATION
  Report Type: Spontaneous
  Country: US (occurrence: US)
  Receive Date: 20140421
  Receipt Date: 20140421
  Transmission Date: 20141212
  Serious: No
  Sender: FDA-Public Use
  Company Number: US-SANOFI-AVENTIS-2013SA086815

PATIENT
  Age: 22 Year
  Sex: Male

DRUGS (3)
  1. ALLEGRA [Suspect]
     Indication: HYPERSENSITIVITY
     Route: 048
     Dates: start: 20130825, end: 20130825
  2. ALLEGRA [Suspect]
     Indication: NASAL DISCOMFORT
     Route: 048
     Dates: start: 20130825, end: 20130825
  3. ALLEGRA [Suspect]
     Indication: RHINORRHOEA
     Route: 048
     Dates: start: 20130825, end: 20130825

REACTIONS (2)
  - Dysphagia [Recovered/Resolved]
  - Dysgeusia [Recovered/Resolved]
